FAERS Safety Report 14766864 (Version 1)
Quarter: 2018Q2

REPORT INFORMATION
  Report Type: Spontaneous
  Country: CH (occurrence: CH)
  Receive Date: 20180417
  Receipt Date: 20180417
  Transmission Date: 20180711
  Serious: Yes (Disabling, Other)
  Sender: FDA-Public Use
  Company Number: CH-AMGEN-CHESP2018042683

PATIENT
  Age: 57 Year
  Sex: Female
  Weight: 106 kg

DRUGS (34)
  1. DAFALGAN [Concomitant]
     Active Substance: ACETAMINOPHEN
     Dosage: 1 G, AS NECESSARY
     Dates: start: 20161123
  2. DERMOVATE [Concomitant]
     Active Substance: CLOBETASOL
     Dosage: 30 G, AS NECESSARY
     Dates: start: 20161123
  3. SUPRADYN VITAL 50+ [Concomitant]
     Dosage: UNK
     Dates: start: 20170105
  4. ISOKET [Concomitant]
     Active Substance: ISOSORBIDE DINITRATE
     Dosage: 15 ML, AS NECESSARY
     Dates: start: 20161123
  5. NEBILET [Concomitant]
     Active Substance: NEBIVOLOL
     Dosage: 5 MG, UNK
     Dates: start: 20161123
  6. REPATHA [Suspect]
     Active Substance: EVOLOCUMAB
     Indication: HYPERCHOLESTEROLAEMIA
     Dosage: 140 MG, Q2WK
     Route: 058
     Dates: start: 20150724
  7. APROVEL [Concomitant]
     Active Substance: IRBESARTAN
     Dosage: 150 MG, UNK
     Dates: start: 20161123
  8. ECHINAMED [Concomitant]
     Dosage: UNK
     Dates: start: 20161123
  9. ESOMEP [Concomitant]
     Active Substance: ESOMEPRAZOLE
     Dosage: 40 MG, UNK
     Dates: start: 20161123
  10. ISOKET [Concomitant]
     Active Substance: ISOSORBIDE DINITRATE
     Dosage: 60 MG, UNK
     Dates: start: 20170216
  11. RESOLOR [Concomitant]
     Active Substance: PRUCALOPRIDE SUCCINATE
     Dosage: 1 MG, UNK
     Dates: start: 20161123
  12. VITAMIN D3 STREULI [Concomitant]
     Active Substance: CHOLECALCIFEROL
     Dosage: 30 ML (4000 LE/ML), QWK
     Dates: start: 20161123
  13. AZOPT [Concomitant]
     Active Substance: BRINZOLAMIDE
     Dosage: UNK (BOTH SIDES)
     Dates: start: 20170105
  14. PROCORALAN [Concomitant]
     Active Substance: IVABRADINE
     Dosage: 5 MG, UNK
     Dates: start: 20170216
  15. AMITIZA [Concomitant]
     Active Substance: LUBIPROSTONE
     Dosage: 0.024 MG, AS NECESSARY
     Dates: start: 20161123
  16. ASPIRIN CARDIO [Concomitant]
     Active Substance: ASPIRIN
     Dosage: 100 MG, UNK
     Dates: start: 20161123
  17. LIPANTHYL [Concomitant]
     Active Substance: FENOFIBRATE
     Dosage: 200 MG, UNK
     Dates: start: 20161123
  18. DAFALGAN [Concomitant]
     Active Substance: ACETAMINOPHEN
     Dosage: 500 MG, AS NECESSARY
     Dates: start: 20161123
  19. XENALON [Concomitant]
     Dosage: 100 MG, UNK
     Dates: start: 20161123
  20. XYZAL [Concomitant]
     Active Substance: LEVOCETIRIZINE DIHYDROCHLORIDE
     Dosage: 5 MG, UNK
     Dates: start: 20161123
  21. VENTOLIN [Concomitant]
     Active Substance: ALBUTEROL SULFATE
     Dosage: UNK UNK, AS NECESSARY
     Dates: start: 20170216
  22. REPATHA [Suspect]
     Active Substance: EVOLOCUMAB
     Indication: CORONARY ARTERY DISEASE
     Dosage: 140 MG, Q2WK
     Route: 058
     Dates: start: 20170524, end: 20180314
  23. CONDROSULF [Concomitant]
     Active Substance: SODIUM CHONDROITIN SULFATE
     Dosage: 800 MG, UNK
     Dates: start: 20161123
  24. TORASEMID SANDOZ ECO [Concomitant]
     Active Substance: TORSEMIDE
     Dosage: 20 MG, UNK
     Dates: start: 20161123
  25. NEOCAPIL [Concomitant]
     Dosage: 50 ML (2%), UNK
     Dates: start: 20170216
  26. SYMBICORT [Concomitant]
     Active Substance: BUDESONIDE\FORMOTEROL FUMARATE DIHYDRATE
     Dosage: UNK (BEFORE MEAL)
     Dates: start: 20170216
  27. INFLAMAC [Concomitant]
     Active Substance: DICLOFENAC SODIUM
     Dosage: UNK UNK, AS NECESSARY
  28. FENTANYL TRANSDERMAL SYSTEM [Concomitant]
     Active Substance: FENTANYL
     Dosage: 25 MUG, EVERY 3 DAYS
     Dates: start: 20100420
  29. PRURI-MED [Concomitant]
     Dosage: 500 ML, UNK
     Dates: start: 20161123
  30. DULCOLAX NOS [Concomitant]
     Active Substance: BISACODYL OR DOCUSATE SODIUM
     Dosage: 5 MG, UNK
     Dates: start: 20161123
  31. FELODIPIN SANDOZ ECO [Concomitant]
     Dosage: 5 MG, UNK
     Dates: start: 20161123
  32. JANUVIA [Concomitant]
     Active Substance: SITAGLIPTIN PHOSPHATE
     Dosage: 100 MG, UNK
     Dates: start: 20161123
  33. ZOLDORM [Concomitant]
     Active Substance: ZOLPIDEM TARTRATE
     Dosage: 10 MG, UNK
     Dates: start: 20161123
  34. MOTILIUM [Concomitant]
     Active Substance: DOMPERIDONE
     Dosage: 10 MG, UNK
     Dates: start: 20170201

REACTIONS (3)
  - Pyrexia [Unknown]
  - Hyperhidrosis [Unknown]
  - Chills [Unknown]

NARRATIVE: CASE EVENT DATE: 201708
